FAERS Safety Report 8988440 (Version 1)
Quarter: 2012Q4

REPORT INFORMATION
  Report Type: Spontaneous
  Country: DE (occurrence: None)
  Receive Date: 20121218
  Receipt Date: 20121218
  Transmission Date: 20130627
  Serious: Yes (Hospitalization, Other)
  Sender: FDA-Public Use
  Company Number: 2012-20742

PATIENT
  Age: 0 Day
  Sex: Male

DRUGS (2)
  1. CITALOPRAM HYDROBROMIDE [Suspect]
     Indication: DEPRESSION
     Route: 064
     Dates: start: 20090829, end: 20100606
  2. FEMIBION (CALCIUM PHOSPHATE DIBASIC, FERROUS SUCCINATE, MAGNESSIUM HYDROXIDE) [Concomitant]

REACTIONS (4)
  - Developmental delay [None]
  - Neonatal respiratory distress syndrome [None]
  - Hypoglycaemia neonatal [None]
  - Maternal drugs affecting foetus [None]
